FAERS Safety Report 4824673-4 (Version None)
Quarter: 2005Q4

REPORT INFORMATION
  Report Type: 
  Country: None (occurrence: None)
  Receive Date: 20051108
  Receipt Date: 20051031
  Transmission Date: 20060501
  Serious: Yes (Death)
  Sender: FDA-Public Use
  Company Number: 2005039948

PATIENT
  Age: 64 Year
  Sex: Male
  Weight: 101 kg

DRUGS (19)
  1. CELECOXIB (CELECOXIB) [Suspect]
     Indication: ARTHRITIS
     Dosage: 100 MG (100 MG, 1 IN 1 D), ORAL
     Route: 048
     Dates: start: 20041001, end: 20041223
  2. ROFECOXIB [Suspect]
     Indication: ARTHRITIS
     Dosage: 50 MG (50 MG, 1 IN 1 D), ORAL
     Route: 048
     Dates: start: 20030403, end: 20041001
  3. DOXAZOSIN (DOXAZOSIN) [Concomitant]
  4. FELODIPINE [Concomitant]
  5. FOLIC ACID [Concomitant]
  6. METHOTREXATE [Concomitant]
  7. FLUVASTATIN (FLUVASTATIN) [Concomitant]
  8. LISINOPRIL [Concomitant]
  9. ATENOLOL [Concomitant]
  10. AMLODIPINE [Concomitant]
  11. CO-PROXAMOL (DEXTROPROPOXYPHENE HYDROCHLORIDE, PARACETAMOL) [Concomitant]
  12. DICLOFENAC SODIUM [Concomitant]
  13. TRAMADOL HCL [Concomitant]
  14. DEXAMETHASONE [Concomitant]
  15. RABEPRAZOLE SODIUM (REABEPRAZOLE SODIUM) [Concomitant]
  16. DIHYDROCODEINE (DIHYDROCODEINE) [Concomitant]
  17. ACETAMINOPHEN W/ CODEINE [Concomitant]
  18. IBUPROFEN [Concomitant]
  19. BENDROFLUAZIDE (BENDROFLUMETHIAZIDE) [Concomitant]

REACTIONS (3)
  - ACUTE MYOCARDIAL INFARCTION [None]
  - BLOOD ALBUMIN INCREASED [None]
  - BLOOD CHOLESTEROL INCREASED [None]
